FAERS Safety Report 18418894 (Version 2)
Quarter: 2020Q4

REPORT INFORMATION
  Report Type: Spontaneous
  Country: JP (occurrence: JP)
  Receive Date: 20201023
  Receipt Date: 20201224
  Transmission Date: 20210114
  Serious: Yes (Hospitalization)
  Sender: FDA-Public Use
  Company Number: JP-STRIDES ARCOLAB LIMITED-2020SP012537

PATIENT
  Age: 19 Year
  Sex: Male

DRUGS (1)
  1. CLARITHROMYCIN. [Suspect]
     Active Substance: CLARITHROMYCIN
     Indication: ENTERITIS
     Dosage: UNK
     Route: 048

REACTIONS (8)
  - Kounis syndrome [Recovered/Resolved]
  - Chest pain [Recovered/Resolved]
  - Prinzmetal angina [Recovered/Resolved]
  - Electrocardiogram T wave inversion [Recovered/Resolved]
  - Arteriospasm coronary [Recovered/Resolved]
  - Ventricular hypokinesia [Recovered/Resolved]
  - Coronary artery stenosis [Recovered/Resolved]
  - Electrocardiogram ST segment depression [Recovered/Resolved]
